FAERS Safety Report 5052190-8 (Version None)
Quarter: 2006Q3

REPORT INFORMATION
  Report Type: 
  Country: None (occurrence: None)
  Receive Date: 20060714
  Receipt Date: 20060714
  Transmission Date: 20061208
  Serious: Yes (Disabling)
  Sender: FDA-Public Use
  Company Number: None

PATIENT
  Age: 73 Year
  Sex: Female
  Weight: 61.7 kg

DRUGS (1)
  1. ACETAMINOPHEN AND CODEINE PHOSPHATE #3 [Suspect]
     Indication: CHEST INJURY
     Dosage: ONE TABLET  Q6H   BUCCAL
     Route: 002
     Dates: start: 20060709, end: 20060709

REACTIONS (1)
  - RASH GENERALISED [None]
